FAERS Safety Report 10231207 (Version 1)
Quarter: 2014Q2

REPORT INFORMATION
  Report Type: Spontaneous
  Country: US (occurrence: US)
  Receive Date: 20140611
  Receipt Date: 20140611
  Transmission Date: 20141212
  Serious: Yes (Other)
  Sender: FDA-Public Use
  Company Number: US-TEVA-487267USA

PATIENT
  Sex: 0

DRUGS (1)
  1. ADENOSINE [Suspect]
     Dosage: 3MG/ML 20ML

REACTIONS (2)
  - Asthma [Unknown]
  - Wrong technique in drug usage process [Unknown]
